FAERS Safety Report 6039920-3 (Version None)
Quarter: 2009Q1

REPORT INFORMATION
  Report Type: 
  Country: None (occurrence: None)
  Receive Date: 20090116
  Receipt Date: 20080916
  Transmission Date: 20090719
  Serious: Yes (Other)
  Sender: FDA-Public Use
  Company Number: US-JNJCH-2008022094

PATIENT
  Age: 81 Year
  Sex: Male
  Weight: 81.6 kg

DRUGS (1)
  1. LISTERINE WHITENING QUICK DISSOLVING STRIPS [Suspect]
     Indication: DENTAL CARE
     Dosage: TEXT:2 STRIPS (BOTTOM ONLY) 2X PER DAY
     Route: 048
     Dates: start: 20080811, end: 20080824

REACTIONS (1)
  - BLOOD GLUCOSE INCREASED [None]
